FAERS Safety Report 16943234 (Version 1)
Quarter: 2019Q4

REPORT INFORMATION
  Report Type: Report from Study
  Country: DE (occurrence: DE)
  Receive Date: 20191021
  Receipt Date: 20191021
  Transmission Date: 20200122
  Serious: Yes (Disabling, Other)
  Sender: FDA-Public Use
  Company Number: DE-SA-2018SA270623

PATIENT
  Age: 33 Year
  Sex: Male

DRUGS (4)
  1. ALEMTUZUMAB [Suspect]
     Active Substance: ALEMTUZUMAB
     Dosage: 12 MG, QD
     Route: 041
     Dates: start: 20170911, end: 20170915
  2. ALEMTUZUMAB [Suspect]
     Active Substance: ALEMTUZUMAB
     Indication: MULTIPLE SCLEROSIS
     Dosage: 12 MG, QD
     Route: 041
     Dates: start: 20180912, end: 20180914
  3. ACYCLOVIR [ACICLOVIR] [Concomitant]
     Active Substance: ACYCLOVIR
     Indication: ANTIVIRAL PROPHYLAXIS
     Dosage: UNK UNK, QD
     Route: 048
     Dates: start: 201809
  4. CETIRIZINE [Concomitant]
     Active Substance: CETIRIZINE HYDROCHLORIDE
     Indication: ALLERGY PROPHYLAXIS
     Dosage: UNK UNK, QD
     Route: 048
     Dates: start: 201809

REACTIONS (19)
  - Poor venous access [Unknown]
  - Vitamin B12 decreased [Unknown]
  - Oedema peripheral [Not Recovered/Not Resolved]
  - Walking disability [Not Recovered/Not Resolved]
  - Sleep disorder [Unknown]
  - Unevaluable event [Not Recovered/Not Resolved]
  - Cystitis [Not Recovered/Not Resolved]
  - Inflammatory marker increased [Not Recovered/Not Resolved]
  - Heart rate increased [Unknown]
  - Pollakiuria [Not Recovered/Not Resolved]
  - Nausea [Not Recovered/Not Resolved]
  - Tachycardia [Unknown]
  - Urine analysis abnormal [Not Recovered/Not Resolved]
  - Automatic bladder [Not Recovered/Not Resolved]
  - Hypertonic bladder [Unknown]
  - Gastrointestinal disorder [Not Recovered/Not Resolved]
  - Poor quality sleep [Not Recovered/Not Resolved]
  - Injection site bruising [Unknown]
  - Diarrhoea [Not Recovered/Not Resolved]

NARRATIVE: CASE EVENT DATE: 201809
